FAERS Safety Report 22218616 (Version 3)
Quarter: 2023Q2

REPORT INFORMATION
  Report Type: Report from Study
  Country: US (occurrence: None)
  Receive Date: 20230417
  Receipt Date: 20230531
  Transmission Date: 20230722
  Serious: Yes (Hospitalization)
  Sender: FDA-Public Use
  Company Number: 2022A326348

PATIENT
  Age: 63 Year
  Sex: Female

DRUGS (41)
  1. ACALABRUTINIB [Suspect]
     Active Substance: ACALABRUTINIB
     Indication: Follicular lymphoma
     Route: 048
     Dates: start: 20200424, end: 20200429
  2. ACALABRUTINIB [Suspect]
     Active Substance: ACALABRUTINIB
     Indication: Follicular lymphoma
     Route: 048
     Dates: start: 20200430, end: 20200430
  3. ACALABRUTINIB [Suspect]
     Active Substance: ACALABRUTINIB
     Indication: Follicular lymphoma
     Route: 048
     Dates: start: 20200501, end: 20200612
  4. ACALABRUTINIB [Suspect]
     Active Substance: ACALABRUTINIB
     Indication: Follicular lymphoma
     Route: 048
     Dates: start: 20200619, end: 20200702
  5. ACALABRUTINIB [Suspect]
     Active Substance: ACALABRUTINIB
     Indication: Follicular lymphoma
     Route: 048
     Dates: start: 20200710, end: 20200910
  6. ACALABRUTINIB [Suspect]
     Active Substance: ACALABRUTINIB
     Indication: Follicular lymphoma
     Route: 048
     Dates: start: 20210618, end: 20220512
  7. ACALABRUTINIB [Suspect]
     Active Substance: ACALABRUTINIB
     Indication: Follicular lymphoma
     Route: 048
     Dates: start: 20220513, end: 20220613
  8. ACALABRUTINIB [Suspect]
     Active Substance: ACALABRUTINIB
     Indication: Follicular lymphoma
     Route: 048
     Dates: start: 20220620, end: 20220727
  9. LENALIDOMIDE [Suspect]
     Active Substance: LENALIDOMIDE
     Indication: Follicular lymphoma
     Route: 048
     Dates: start: 20200424, end: 20200515
  10. LENALIDOMIDE [Suspect]
     Active Substance: LENALIDOMIDE
     Indication: Follicular lymphoma
     Route: 048
     Dates: start: 20200522, end: 20200612
  11. LENALIDOMIDE [Suspect]
     Active Substance: LENALIDOMIDE
     Indication: Follicular lymphoma
     Route: 048
     Dates: start: 20200619, end: 20200707
  12. LENALIDOMIDE [Suspect]
     Active Substance: LENALIDOMIDE
     Indication: Follicular lymphoma
     Route: 048
     Dates: start: 20200717, end: 20200807
  13. LENALIDOMIDE [Suspect]
     Active Substance: LENALIDOMIDE
     Indication: Follicular lymphoma
     Route: 048
     Dates: start: 20200814, end: 20200904
  14. LENALIDOMIDE [Suspect]
     Active Substance: LENALIDOMIDE
     Indication: Follicular lymphoma
     Route: 048
     Dates: start: 20200911, end: 20201002
  15. LENALIDOMIDE [Suspect]
     Active Substance: LENALIDOMIDE
     Indication: Follicular lymphoma
     Route: 048
     Dates: start: 20201009, end: 20201030
  16. LENALIDOMIDE [Suspect]
     Active Substance: LENALIDOMIDE
     Indication: Follicular lymphoma
     Route: 048
     Dates: start: 20201106, end: 20201127
  17. LENALIDOMIDE [Suspect]
     Active Substance: LENALIDOMIDE
     Indication: Follicular lymphoma
     Route: 048
     Dates: start: 20201204, end: 20201225
  18. LENALIDOMIDE [Suspect]
     Active Substance: LENALIDOMIDE
     Indication: Follicular lymphoma
     Route: 048
     Dates: start: 20201230, end: 20210120
  19. LENALIDOMIDE [Suspect]
     Active Substance: LENALIDOMIDE
     Indication: Follicular lymphoma
     Route: 048
     Dates: start: 20210126, end: 20210216
  20. RITUXIMAB [Suspect]
     Active Substance: RITUXIMAB
     Indication: Follicular lymphoma
     Dosage: 791.0MG ONCE/SINGLE ADMINISTRATION
     Route: 042
     Dates: start: 20200424, end: 20200424
  21. RITUXIMAB [Suspect]
     Active Substance: RITUXIMAB
     Indication: Follicular lymphoma
     Dosage: 791.0MG ONCE/SINGLE ADMINISTRATION
     Route: 042
     Dates: start: 20220325, end: 20220325
  22. DIPHENHYDRAMINE [Concomitant]
     Active Substance: DIPHENHYDRAMINE
     Indication: Pain
     Dosage: 25.0MG AS REQUIRED
     Route: 048
     Dates: start: 2000
  23. DIPHENHYDRAMINE [Concomitant]
     Active Substance: DIPHENHYDRAMINE
     Indication: Pain
     Dosage: 40.0MG AS REQUIRED
     Route: 048
     Dates: start: 20200424
  24. LEVOTHYROXINE [Concomitant]
     Active Substance: LEVOTHYROXINE
     Indication: Hypothyroidism
     Route: 048
     Dates: start: 20200327
  25. PREGABALIN [Concomitant]
     Active Substance: PREGABALIN
     Indication: Arthralgia
     Route: 048
     Dates: start: 20191206
  26. ASPIRIN [Concomitant]
     Active Substance: ASPIRIN
     Indication: Urinary bladder haemorrhage
     Route: 048
     Dates: start: 2000
  27. OXYCODONE [Concomitant]
     Active Substance: OXYCODONE
     Indication: Pain
     Dosage: 10.0MG AS REQUIRED
     Route: 048
     Dates: start: 20060606
  28. FAMOTIDINE [Concomitant]
     Active Substance: FAMOTIDINE
     Indication: Premedication
     Dosage: 20.0MG AS REQUIRED
     Route: 048
     Dates: start: 20200424
  29. FUROSEMIDE [Concomitant]
     Active Substance: FUROSEMIDE
     Indication: Peripheral swelling
     Route: 048
     Dates: start: 20180612
  30. CYCLOBENZAPINE [Concomitant]
     Indication: Osteoarthritis
     Route: 048
     Dates: start: 20190604
  31. CLOZAPINE [Concomitant]
     Active Substance: CLOZAPINE
     Indication: Nausea
     Route: 048
     Dates: start: 20201025
  32. HYDROCORTISONE SODIUM SUCCINATE [Concomitant]
     Active Substance: HYDROCORTISONE SODIUM SUCCINATE
     Indication: Premedication
     Dosage: 40.0MG AS REQUIRED
     Route: 042
     Dates: start: 20200424
  33. CYANOCOBALAMIN [Concomitant]
     Active Substance: CYANOCOBALAMIN
     Indication: Vitamin B12 deficiency
     Dosage: 1000UG/ML MONTHLY
     Route: 014
     Dates: start: 20191029
  34. CANNABIS EDIBLES [Concomitant]
     Indication: Pain
     Dosage: 5.0MG AS REQUIRED
     Route: 048
     Dates: start: 20201106
  35. ACETAMINOPHEN [Concomitant]
     Active Substance: ACETAMINOPHEN
     Indication: Pain
     Dosage: 650.0MG AS REQUIRED
     Route: 048
     Dates: start: 20200424
  36. POTASSIUM CHLORIDE [Concomitant]
     Active Substance: POTASSIUM CHLORIDE
     Indication: Peripheral swelling
     Route: 048
     Dates: start: 20180612
  37. COMPAZINE [Concomitant]
     Active Substance: PROCHLORPERAZINE MALEATE
     Indication: Nausea
     Dosage: 10 MG QSH AS REQUIRED
     Route: 048
     Dates: start: 20200619
  38. ACETAMINOPHEN\OXYCODONE HYDROCHLORIDE [Concomitant]
     Active Substance: ACETAMINOPHEN\OXYCODONE HYDROCHLORIDE
     Indication: Arthralgia
     Dosage: 10-325 MG EVERY FOUR HOURS AS NEEDED
     Route: 048
     Dates: start: 20190404
  39. ACETAMINOPHEN\OXYCODONE HYDROCHLORIDE [Concomitant]
     Active Substance: ACETAMINOPHEN\OXYCODONE HYDROCHLORIDE
     Indication: Osteoarthritis
     Dosage: 10-325 MG EVERY FOUR HOURS AS NEEDED
     Route: 048
     Dates: start: 20190404
  40. BENTYL [Concomitant]
     Active Substance: DICYCLOMINE HYDROCHLORIDE
     Indication: Muscle spasms
     Route: 048
     Dates: start: 20200508
  41. IMODIUM [Concomitant]
     Active Substance: LOPERAMIDE HYDROCHLORIDE
     Indication: Diarrhoea
     Dosage: 2.0MG AS REQUIRED
     Route: 048
     Dates: start: 20220828

REACTIONS (1)
  - Hypoxia [Recovered/Resolved]

NARRATIVE: CASE EVENT DATE: 20220919
